FAERS Safety Report 22142024 (Version 1)
Quarter: 2023Q1

REPORT INFORMATION
  Report Type: Spontaneous
  Country: US (occurrence: US)
  Receive Date: 20230327
  Receipt Date: 20230327
  Transmission Date: 20230418
  Serious: No
  Sender: FDA-Public Use
  Company Number: US-RECORDATI-2023001755

PATIENT

DRUGS (2)
  1. ISTURISA [Suspect]
     Active Substance: OSILODROSTAT PHOSPHATE
     Indication: Pituitary-dependent Cushing^s syndrome
     Dosage: UNK
     Route: 065
  2. ISTURISA [Suspect]
     Active Substance: OSILODROSTAT PHOSPHATE
     Dosage: 6 MILLIGRAM, BID
     Route: 065

REACTIONS (2)
  - Weight increased [Unknown]
  - Cortisol free urine increased [Unknown]

NARRATIVE: CASE EVENT DATE: 20230201
